FAERS Safety Report 6709449-5 (Version None)
Quarter: 2010Q2

REPORT INFORMATION
  Report Type: 
  Country: None (occurrence: None)
  Receive Date: 20100504
  Receipt Date: 20100420
  Transmission Date: 20101027
  Serious: Yes (Other)
  Sender: FDA-Public Use
  Company Number: PHHY2010GB27168

PATIENT
  Sex: Male

DRUGS (2)
  1. CLOZARIL [Suspect]
     Indication: SCHIZOPHRENIA
     Dosage: UNK
     Dates: start: 19980701
  2. CLOZARIL [Suspect]
     Dosage: 600 MG, QD
     Dates: start: 19990416

REACTIONS (1)
  - SLEEP APNOEA SYNDROME [None]
